FAERS Safety Report 10673876 (Version 1)
Quarter: 2014Q4

REPORT INFORMATION
  Report Type: Report from Study
  Country: US (occurrence: US)
  Receive Date: 20141224
  Receipt Date: 20141224
  Transmission Date: 20150529
  Serious: Yes (Hospitalization)
  Sender: FDA-Public Use
  Company Number: US-SA-2014SA175730

PATIENT
  Age: 63 Year
  Sex: Female
  Weight: 67.2 kg

DRUGS (8)
  1. TYLENOL [Concomitant]
     Active Substance: ACETAMINOPHEN
  2. ZIV-AFLIBERCEPT [Suspect]
     Active Substance: ZIV-AFLIBERCEPT
     Indication: OVARIAN CANCER METASTATIC
     Dosage: DOSE: 3MG/KG OVER 60 MINUTES?TOTAL DOSE ADMINISTRED 382 MG
     Route: 042
     Dates: start: 20141009, end: 20141009
  3. COLACE [Concomitant]
     Active Substance: DOCUSATE SODIUM
  4. EMLA [Concomitant]
     Active Substance: LIDOCAINE\PRILOCAINE
  5. ZIV-AFLIBERCEPT [Suspect]
     Active Substance: ZIV-AFLIBERCEPT
     Indication: OVARIAN CANCER METASTATIC
     Dosage: DOSE: 3MG/KG OVER 60 MINUTES
     Route: 042
     Dates: start: 201409, end: 201409
  6. NEXIUM [Concomitant]
     Active Substance: ESOMEPRAZOLE MAGNESIUM
  7. NORVASC [Concomitant]
     Active Substance: AMLODIPINE BESYLATE
  8. PRILOSEC [Concomitant]
     Active Substance: OMEPRAZOLE MAGNESIUM

REACTIONS (2)
  - Pancreatitis [Not Recovered/Not Resolved]
  - Hypertension [Not Recovered/Not Resolved]

NARRATIVE: CASE EVENT DATE: 20141015
